FAERS Safety Report 6072342-8 (Version None)
Quarter: 2009Q1

REPORT INFORMATION
  Report Type: 
  Country: None (occurrence: None)
  Receive Date: 20090210
  Receipt Date: 20090130
  Transmission Date: 20090719
  Serious: Yes (Hospitalization, Other)
  Sender: FDA-Public Use
  Company Number: PHHY2009ES03462

PATIENT
  Age: 24 Year
  Sex: Female

DRUGS (6)
  1. EXJADE [Interacting]
     Indication: HAEMOSIDEROSIS
     Dosage: 1500 GM
     Dates: start: 20080806, end: 20080825
  2. CYCLOSPORINE [Suspect]
     Indication: STEM CELL TRANSPLANT
     Dosage: 300 MG/DAY
     Route: 048
     Dates: start: 20080528, end: 20080825
  3. FLUCONAZOLE [Concomitant]
  4. AMLODIPINE [Concomitant]
  5. CAPTOPRIL [Concomitant]
  6. VALGANCICLOVIR HCL [Concomitant]

REACTIONS (7)
  - ASTHENIA [None]
  - BLOOD CREATININE INCREASED [None]
  - DRUG INTERACTION [None]
  - HAEMOGLOBIN DECREASED [None]
  - MALAISE [None]
  - RENAL FAILURE ACUTE [None]
  - VOMITING [None]
